FAERS Safety Report 24199477 (Version 6)
Quarter: 2024Q4

REPORT INFORMATION
  Report Type: Spontaneous
  Country: JP (occurrence: JP)
  Receive Date: 20240812
  Receipt Date: 20241129
  Transmission Date: 20250115
  Serious: Yes (Death, Hospitalization, Other)
  Sender: ASTELLAS
  Company Number: JP-ASTELLAS-2024JP005600

PATIENT
  Age: 74 Year
  Sex: Female
  Weight: 60 kg

DRUGS (21)
  1. PADCEV [Suspect]
     Active Substance: ENFORTUMAB VEDOTIN\ENFORTUMAB VEDOTIN-EJFV
     Indication: Malignant neoplasm of renal pelvis
     Dosage: USUAL DOSE
     Route: 042
     Dates: start: 20240718, end: 20240801
  2. Thyradin tablets [Concomitant]
     Indication: Hypothyroidism
     Route: 065
     Dates: start: 20240619, end: 20240810
  3. Thyradin tablets [Concomitant]
     Indication: Thyroiditis
  4. Cilnidipine tablets [Concomitant]
     Indication: Hypertension
     Route: 065
     Dates: end: 20240809
  5. FAMOTIDINE [Concomitant]
     Active Substance: FAMOTIDINE
     Indication: Chronic gastritis
     Route: 065
     Dates: end: 20240810
  6. CLOPIDOGREL [Concomitant]
     Active Substance: CLOPIDOGREL BISULFATE
     Indication: Cerebral infarction
     Route: 065
     Dates: end: 20240810
  7. LEXAPRO [Concomitant]
     Active Substance: ESCITALOPRAM OXALATE
     Indication: Insomnia
     Route: 065
     Dates: end: 20240810
  8. Atarax capsules [Concomitant]
     Indication: Insomnia
     Route: 065
     Dates: end: 20240809
  9. ETIZOLAM [Concomitant]
     Active Substance: ETIZOLAM
     Indication: Insomnia
     Route: 065
     Dates: end: 20240809
  10. Pitavastatin tablets [Concomitant]
     Indication: Dyslipidaemia
     Route: 065
  11. Urso tablets [Concomitant]
     Indication: Hepatic function abnormal
     Route: 065
     Dates: end: 20240810
  12. MIYA-BM [Concomitant]
     Active Substance: CLOSTRIDIUM BUTYRICUM SPORES STRAIN M-55
     Indication: Diarrhoea
     Route: 065
     Dates: end: 20240810
  13. Lopemin Capsules [Concomitant]
     Indication: Diarrhoea
     Route: 065
     Dates: end: 20240810
  14. Magnesium oxide tablets [Concomitant]
     Indication: Constipation
     Route: 065
     Dates: end: 20240810
  15. SENNOSIDES [Concomitant]
     Active Substance: SENNOSIDES
     Indication: Constipation
     Route: 065
     Dates: end: 20240810
  16. Tramal tablets [Concomitant]
     Indication: Cancer pain
     Route: 065
     Dates: end: 20240810
  17. METOCLOPRAMIDE [Concomitant]
     Active Substance: METOCLOPRAMIDE
     Indication: Nausea
     Route: 065
     Dates: end: 20240810
  18. CALONAL [Concomitant]
     Active Substance: ACETAMINOPHEN
     Indication: Cancer pain
     Route: 065
     Dates: end: 20240810
  19. CEFEPIME [Concomitant]
     Active Substance: CEFEPIME HYDROCHLORIDE
     Indication: Febrile neutropenia
     Route: 065
     Dates: start: 20240808, end: 20240812
  20. FILGRASTIM [Concomitant]
     Active Substance: FILGRASTIM
     Indication: Febrile neutropenia
     Route: 065
     Dates: start: 20240808
  21. MEROPENEM [Concomitant]
     Active Substance: MEROPENEM
     Indication: Febrile neutropenia
     Route: 065
     Dates: start: 20240812

REACTIONS (7)
  - Febrile neutropenia [Fatal]
  - Stevens-Johnson syndrome [Fatal]
  - Septic shock [Fatal]
  - Diarrhoea [Unknown]
  - Renal impairment [Not Recovered/Not Resolved]
  - Hepatic function abnormal [Not Recovered/Not Resolved]
  - Overdose [Unknown]

NARRATIVE: CASE EVENT DATE: 20240718
